FAERS Safety Report 25445327 (Version 1)
Quarter: 2025Q2

REPORT INFORMATION
  Report Type: Spontaneous
  Country: JP (occurrence: JP)
  Receive Date: 20250617
  Receipt Date: 20250617
  Transmission Date: 20250717
  Serious: Yes (Other)
  Sender: Phathom Pharmaceuticals
  Company Number: JP-PHATHOM PHARMACEUTICALS INC.-2025PHT01432

PATIENT
  Age: 66 Year
  Sex: Female

DRUGS (8)
  1. VONOPRAZAN [Suspect]
     Active Substance: VONOPRAZAN
     Indication: Gastrointestinal disorder
     Dosage: 20 MG, 1X/DAY
  2. IRON [Suspect]
     Active Substance: IRON
     Indication: Anaemia
     Route: 048
  3. PACLITAXEL [Suspect]
     Active Substance: PACLITAXEL
     Indication: Breast cancer
     Dosage: 210 MILLIGRAM/SQ. METER
  4. MESALAMINE [Concomitant]
     Active Substance: MESALAMINE
  5. OLMESARTAN [Concomitant]
     Active Substance: OLMESARTAN
  6. FAMOTIDINE [Concomitant]
     Active Substance: FAMOTIDINE
  7. CLOBETASOL PROPIONATE [Concomitant]
     Active Substance: CLOBETASOL PROPIONATE
  8. PREDNISOLONE [Concomitant]
     Active Substance: PREDNISOLONE

REACTIONS (1)
  - Acute generalised exanthematous pustulosis [Unknown]
